FAERS Safety Report 4407486-7 (Version None)
Quarter: 2004Q3

REPORT INFORMATION
  Report Type: 
  Country: None (occurrence: None)
  Receive Date: 20040721
  Receipt Date: 20040714
  Transmission Date: 20050211
  Serious: Yes (Hospitalization)
  Sender: FDA-Public Use
  Company Number: EWC040739826

PATIENT
  Age: 51 Year
  Sex: Female
  Weight: 69 kg

DRUGS (7)
  1. GEMCITABINE HYDROCHLORIDE-IV (GEMCITABINE) [Suspect]
     Indication: PANCREATIC CARCINOMA
     Dosage: 2000 MG/2 OTHER
     Route: 050
     Dates: start: 20040318, end: 20040422
  2. LOZAP (LOSARTAN POTASSIUM) [Concomitant]
  3. GELOCATIL (PARACETAMOL) [Concomitant]
  4. ORFIDL (LORAZEPAM) [Concomitant]
  5. TEGAFUR [Concomitant]
  6. FOLINIC ACID [Concomitant]
  7. DIANBEN (METFORMIN HYDROCHLORIDE) [Concomitant]

REACTIONS (3)
  - DIARRHOEA [None]
  - MUCOSAL INFLAMMATION [None]
  - PERIPHERAL EMBOLISM [None]
